FAERS Safety Report 6025712-8 (Version None)
Quarter: 2008Q4

REPORT INFORMATION
  Report Type: 
  Country: None (occurrence: None)
  Receive Date: 20081231
  Receipt Date: 20081222
  Transmission Date: 20090506
  Serious: Yes (Other)
  Sender: FDA-Public Use
  Company Number: JP-MERCK-0812USA04885

PATIENT
  Age: 87 Year

DRUGS (1)
  1. PEPCID [Suspect]
     Route: 048

REACTIONS (1)
  - UNRESPONSIVE TO STIMULI [None]
